FAERS Safety Report 20770408 (Version 2)
Quarter: 2022Q2

REPORT INFORMATION
  Report Type: Spontaneous
  Country: US (occurrence: US)
  Receive Date: 20220429
  Receipt Date: 20220516
  Transmission Date: 20220721
  Serious: No
  Sender: FDA-Public Use
  Company Number: US-PFIZER INC-202200429007

PATIENT
  Age: 87 Year
  Sex: Female

DRUGS (1)
  1. IBRANCE [Suspect]
     Active Substance: PALBOCICLIB
     Dosage: 75 MG, 1X/DAY (1 TABLET (75MG) ONCE DAILY FOR 14 CONSECUTIVE DAYS, FOLLOWED BY 14 DAYS OFF)
     Route: 048

REACTIONS (6)
  - Off label use [Unknown]
  - White blood cell count decreased [Not Recovered/Not Resolved]
  - Decreased immune responsiveness [Not Recovered/Not Resolved]
  - Asthenia [Unknown]
  - Oral pain [Unknown]
  - Neoplasm progression [Unknown]
